FAERS Safety Report 4515448-4 (Version None)
Quarter: 2004Q4

REPORT INFORMATION
  Report Type: 
  Country: None (occurrence: None)
  Receive Date: 20041126
  Receipt Date: 20041116
  Transmission Date: 20050328
  Serious: Yes (Hospitalization)
  Sender: FDA-Public Use
  Company Number: 2004093384

PATIENT
  Age: 50 Year
  Sex: Female
  Weight: 83 kg

DRUGS (7)
  1. LIPITOR [Suspect]
     Indication: HYPERCHOLESTEROLAEMIA
     Dates: end: 20040519
  2. ROSIGITAZONE MALEATE [Concomitant]
  3. PAROXETINE HCL [Concomitant]
  4. METFORMIN HCL [Concomitant]
  5. GLIPIZIDE [Concomitant]
  6. ALL OTHER THERAPEUTIC PRODUCTS (ALL OTHER THERAPEUTIC PRODUCTS) [Concomitant]
  7. LOPERAMIDE HCL [Concomitant]

REACTIONS (2)
  - DERMATOMYOSITIS [None]
  - RHABDOMYOLYSIS [None]
